FAERS Safety Report 8595163-0 (Version None)
Quarter: 2012Q3

REPORT INFORMATION
  Report Type: 
  Country: None (occurrence: None)
  Receive Date: 20120815
  Receipt Date: 20120806
  Transmission Date: 20120928
  Serious: Yes (Hospitalization)
  Sender: FDA-Public Use
  Company Number: FR-ASTRAZENECA-2012SE56473

PATIENT
  Age: 73 Year
  Sex: Male

DRUGS (14)
  1. CIPROFLOXACIN HYDROCHLORIDE [Suspect]
     Route: 042
     Dates: start: 20120711, end: 20120723
  2. OFLOXACIN [Suspect]
     Route: 042
     Dates: start: 20120709, end: 20120711
  3. PANTOPRAZOLE SODIUM [Suspect]
     Route: 048
     Dates: start: 20120707, end: 20120711
  4. ACETAMINOPHEN [Suspect]
     Route: 048
     Dates: start: 20120711, end: 20120717
  5. LOVENOX [Concomitant]
  6. TAZOBACTAM [Suspect]
     Route: 042
     Dates: start: 20120709, end: 20120713
  7. CORDARONE [Concomitant]
  8. NOVORAPID [Concomitant]
     Route: 058
     Dates: start: 20120711
  9. TENORMIN [Suspect]
     Route: 048
     Dates: start: 20120707, end: 20120711
  10. PLAVIX [Suspect]
     Route: 048
     Dates: start: 20120707, end: 20120707
  11. ACUPAN [Suspect]
     Route: 042
     Dates: start: 20120714, end: 20120724
  12. LASIX [Concomitant]
  13. NICOBION [Concomitant]
  14. IMIPENEM AND CILASTATIN SODIUM [Suspect]
     Route: 042
     Dates: start: 20120704, end: 20120707

REACTIONS (1)
  - LEUKOCYTOCLASTIC VASCULITIS [None]
